FAERS Safety Report 15720160 (Version 5)
Quarter: 2019Q2

REPORT INFORMATION
  Report Type: Report from Study
  Country: DE (occurrence: DE)
  Receive Date: 20181213
  Receipt Date: 20190408
  Transmission Date: 20190711
  Serious: Yes (Hospitalization, Other)
  Sender: FDA-Public Use
  Company Number: DE-MYLANLABS-2018M1093044

PATIENT
  Age: 34 Year
  Sex: Male

DRUGS (24)
  1. OLANZAPINE. [Suspect]
     Active Substance: OLANZAPINE
     Dosage: 20 MILLIGRAM, QD
     Route: 048
     Dates: start: 20170812, end: 20170814
  2. HALOPERIDOL. [Concomitant]
     Active Substance: HALOPERIDOL
     Indication: PRODUCT USED FOR UNKNOWN INDICATION
     Dosage: 3 MILLIGRAM, QD
  3. CLOZAPINE. [Suspect]
     Active Substance: CLOZAPINE
     Dosage: 100 MILLIGRAM, QD
     Route: 048
     Dates: start: 20170909
  4. OLANZAPINE. [Suspect]
     Active Substance: OLANZAPINE
     Dosage: 30 MILLIGRAM, QD
     Route: 048
     Dates: start: 20170815, end: 20170910
  5. CLOZAPINE. [Suspect]
     Active Substance: CLOZAPINE
     Indication: PRODUCT USED FOR UNKNOWN INDICATION
     Dosage: 25 MILLIGRAM, QD
     Route: 048
     Dates: start: 20170906, end: 20170907
  6. ABILIFY [Suspect]
     Active Substance: ARIPIPRAZOLE
     Indication: PRODUCT USED FOR UNKNOWN INDICATION
     Dosage: 30 MILLIGRAM, AM
     Route: 048
     Dates: end: 20170910
  7. LITHIUM CARBONATE. [Concomitant]
     Active Substance: LITHIUM CARBONATE
     Dosage: 900 MILLIGRAM, QD
     Route: 048
     Dates: start: 20170830, end: 20170905
  8. AKINETON [Concomitant]
     Active Substance: BIPERIDEN HYDROCHLORIDE
     Indication: PRODUCT USED FOR UNKNOWN INDICATION
     Dosage: 4 MILLIGRAM, QD
     Route: 048
     Dates: start: 20170808, end: 20170910
  9. DIAZEPAM. [Suspect]
     Active Substance: DIAZEPAM
     Dosage: 60 MILLIGRAM, QD
     Route: 048
     Dates: start: 20170907, end: 20170909
  10. LITHIUM CARBONATE. [Concomitant]
     Active Substance: LITHIUM CARBONATE
     Indication: PRODUCT USED FOR UNKNOWN INDICATION
     Dosage: 450 MILLIGRAM, QD
     Route: 048
     Dates: start: 20170829
  11. OLANZAPINE. [Suspect]
     Active Substance: OLANZAPINE
     Indication: PRODUCT USED FOR UNKNOWN INDICATION
     Dosage: 10 MILLIGRAM, QD
     Route: 048
     Dates: start: 20170810, end: 20170811
  12. DIAZEPAM. [Suspect]
     Active Substance: DIAZEPAM
     Indication: PRODUCT USED FOR UNKNOWN INDICATION
     Dosage: 20 MILLIGRAM, QD
     Route: 048
     Dates: start: 20170803, end: 20170803
  13. DIAZEPAM. [Suspect]
     Active Substance: DIAZEPAM
     Dosage: 40 MILLIGRAM, QD
     Route: 048
     Dates: start: 20170804, end: 20170825
  14. DIAZEPAM. [Suspect]
     Active Substance: DIAZEPAM
     Dosage: 50 MILLIGRAM, QD
     Route: 048
     Dates: start: 20170826, end: 20170905
  15. DIAZEPAM. [Suspect]
     Active Substance: DIAZEPAM
     Dosage: 40 MILLIGRAM, QD
     Route: 048
     Dates: start: 20170910
  16. ZUCLOPENTHIXOL [Suspect]
     Active Substance: ZUCLOPENTHIXOL
     Dosage: 200 MILLIGRAM, QD
     Route: 048
     Dates: start: 20170822, end: 20170910
  17. LITHIUM CARBONATE. [Concomitant]
     Active Substance: LITHIUM CARBONATE
     Dosage: 1250 MILLIGRAM
  18. CLOZAPINE. [Suspect]
     Active Substance: CLOZAPINE
     Dosage: 50 MILLIGRAM, QD
     Route: 048
     Dates: start: 20170908
  19. CLOZAPINE. [Suspect]
     Active Substance: CLOZAPINE
     Dosage: 150 MILLIGRAM, QD
     Route: 048
     Dates: start: 20170910
  20. ARIPIPRAZOLE. [Suspect]
     Active Substance: ARIPIPRAZOLE
     Indication: PRODUCT USED FOR UNKNOWN INDICATION
     Dosage: 30 MG, OM, FOR WEEKS
     Route: 048
     Dates: end: 20170910
  21. DIAZEPAM. [Suspect]
     Active Substance: DIAZEPAM
     Dosage: 55 MILLIGRAM, QD
     Route: 048
     Dates: start: 20170906
  22. CLEXANE [Concomitant]
     Active Substance: ENOXAPARIN SODIUM
     Indication: ANTICOAGULANT THERAPY
     Dosage: 0.6 INTERNATIONAL UNIT, QD
     Route: 058
     Dates: start: 20170809
  23. ZUCLOPENTHIXOL [Suspect]
     Active Substance: ZUCLOPENTHIXOL
     Indication: PRODUCT USED FOR UNKNOWN INDICATION
     Dosage: 150 MILLIGRAM, QD
     Route: 048
     Dates: start: 20170821
  24. LITHIUM CARBONATE. [Concomitant]
     Active Substance: LITHIUM CARBONATE
     Dosage: 1350 MILLIGRAM, QD
     Route: 048
     Dates: start: 20170906, end: 20170910

REACTIONS (17)
  - Aggression [Unknown]
  - Pleural effusion [Unknown]
  - Pneumonia aspiration [Recovered/Resolved]
  - Acute respiratory failure [Recovered/Resolved]
  - Lung infiltration [Unknown]
  - Psychotic disorder [Unknown]
  - Duodenitis [Unknown]
  - Patient restraint [Unknown]
  - Gastritis [Unknown]
  - Delusion [Unknown]
  - Salivary hypersecretion [Recovered/Resolved]
  - Aspiration [Unknown]
  - Tension [Unknown]
  - Self-injurious ideation [Unknown]
  - Thinking abnormal [Unknown]
  - Dysphagia [Recovered/Resolved]
  - Hyporeflexia [Unknown]

NARRATIVE: CASE EVENT DATE: 20170909
